FAERS Safety Report 7797303-X (Version None)
Quarter: 2011Q4

REPORT INFORMATION
  Report Type: 
  Country: None (occurrence: None)
  Receive Date: 20111005
  Receipt Date: 20110930
  Transmission Date: 20120403
  Serious: Yes (Other)
  Sender: FDA-Public Use
  Company Number: US-PFIZER INC-2009192452

PATIENT
  Sex: Female
  Weight: 70 kg

DRUGS (4)
  1. DYAZIDE [Concomitant]
     Indication: DIURETIC THERAPY
  2. DYAZIDE [Concomitant]
     Indication: HYPERTENSION
     Dosage: UNK
     Dates: start: 19900101
  3. PROVERA [Suspect]
     Indication: HORMONE REPLACEMENT THERAPY
     Dosage: 2.5 - 10 MG UNK
     Route: 048
     Dates: start: 19840101, end: 19960501
  4. PREMARIN [Suspect]
     Indication: HORMONE REPLACEMENT THERAPY
     Dosage: UNK
     Route: 048
     Dates: start: 19840101, end: 19960501

REACTIONS (1)
  - BREAST CANCER STAGE III [None]
